FAERS Safety Report 8272588 (Version 4)
Quarter: 2013Q4

REPORT INFORMATION
  Report Type: Spontaneous
  Country: CA (occurrence: CA)
  Receive Date: 20111202
  Receipt Date: 20131105
  Transmission Date: 20140711
  Serious: Yes (Hospitalization)
  Sender: FDA-Public Use
  Company Number: CA-ROCHE-1017510

PATIENT
  Sex: Female

DRUGS (10)
  1. XOLAIR [Suspect]
     Indication: ASTHMA
     Route: 058
     Dates: start: 20111115, end: 20130923
  2. PULMICORT [Concomitant]
  3. DILANTIN SODIUM [Concomitant]
  4. CARBAMAZEPINE [Concomitant]
  5. RISEDRONATE [Concomitant]
  6. ADVAIR [Concomitant]
  7. REACTINE PLUS (SPAIN) [Concomitant]
  8. VENTOLIN [Concomitant]
  9. SALBUTAMOL [Concomitant]
  10. ENALAPRIL [Concomitant]

REACTIONS (2)
  - Convulsion [Recovering/Resolving]
  - Fall [Unknown]
